FAERS Safety Report 6641903-7 (Version None)
Quarter: 2010Q1

REPORT INFORMATION
  Report Type: 
  Country: None (occurrence: None)
  Receive Date: 20100319
  Receipt Date: 20100311
  Transmission Date: 20100710
  Serious: Yes (Death, Hospitalization)
  Sender: FDA-Public Use
  Company Number: HR-ABBOTT-10P-216-0628862-00

PATIENT
  Age: 50 Year
  Sex: Male

DRUGS (7)
  1. ZEMPLAR [Suspect]
     Indication: HYPERPARATHYROIDISM SECONDARY
     Dosage: 3 X 1 MCG WEEKLY
     Dates: start: 20071030, end: 20090801
  2. ZEMPLAR [Suspect]
     Dosage: 3 X 2 MCG WEEKLY
     Dates: start: 20090801, end: 20100215
  3. EPREX [Concomitant]
     Indication: DRUG USE FOR UNKNOWN INDICATION
     Dosage: 3X2000 IU WEEKLY
  4. VENOFER [Concomitant]
     Indication: DRUG USE FOR UNKNOWN INDICATION
     Dosage: HALF A TABLET A DAY
  5. LACIPIL [Concomitant]
     Indication: DRUG USE FOR UNKNOWN INDICATION
  6. TINIDIL [Concomitant]
     Indication: DRUG USE FOR UNKNOWN INDICATION
  7. RENAGEL [Concomitant]
     Indication: DRUG USE FOR UNKNOWN INDICATION
     Dosage: 3X1 TABLET PER DAY

REACTIONS (4)
  - COLON CANCER [None]
  - EMBOLISM [None]
  - HAEMORRHAGIC STROKE [None]
  - HYPERTENSIVE CRISIS [None]
